FAERS Safety Report 4872275-6 (Version None)
Quarter: 2005Q4

REPORT INFORMATION
  Report Type: 
  Country: None (occurrence: None)
  Receive Date: 20051201
  Receipt Date: 20050803
  Transmission Date: 20060501
  Serious: No
  Sender: FDA-Public Use
  Company Number: 2005PV000785

PATIENT
  Age: 61 Year
  Sex: Female
  Weight: 92.9874 kg

DRUGS (12)
  1. BYETTA [Suspect]
     Indication: DIABETES MELLITUS NON-INSULIN-DEPENDENT
     Dosage: 5 MCG;BID;SC
     Route: 058
     Dates: start: 20050729
  2. FUROSEMIDE [Concomitant]
  3. TEGRETOL [Concomitant]
  4. PRAVACHOL [Concomitant]
  5. DESYREL [Concomitant]
  6. ECOTRIN [Concomitant]
  7. PROTONIX [Concomitant]
  8. AMARYL [Concomitant]
  9. POTASSIUM CHLORIDE [Concomitant]
  10. WARFARIN [Concomitant]
  11. BETAPACE [Concomitant]
  12. HUMULIN [Concomitant]

REACTIONS (5)
  - DECREASED ACTIVITY [None]
  - DISTURBANCE IN ATTENTION [None]
  - MALAISE [None]
  - NAUSEA [None]
  - VOMITING [None]
